FAERS Safety Report 21772768 (Version 8)
Quarter: 2024Q2

REPORT INFORMATION
  Report Type: Report from Study
  Country: US (occurrence: US)
  Receive Date: 20221223
  Receipt Date: 20240610
  Transmission Date: 20240716
  Serious: Yes (Hospitalization, Other)
  Sender: FDA-Public Use
  Company Number: US-TAKEDA-US202030726

PATIENT
  Age: 67 Year
  Sex: Female

DRUGS (3)
  1. HUMAN IMMUNOGLOBULIN G [Suspect]
     Active Substance: HUMAN IMMUNOGLOBULIN G
     Indication: Primary immunodeficiency syndrome
     Dosage: UNK
     Route: 058
  2. HUMAN IMMUNOGLOBULIN G [Suspect]
     Active Substance: HUMAN IMMUNOGLOBULIN G
     Indication: Immunodeficiency common variable
     Dosage: UNK
     Route: 042
  3. ORENCIA [Concomitant]
     Active Substance: ABATACEPT
     Dosage: UNK, Q4WEEKS
     Route: 065

REACTIONS (12)
  - Hernia [Unknown]
  - Procedural nausea [Unknown]
  - Cataract [Recovering/Resolving]
  - Fatigue [Unknown]
  - Arthritis [Unknown]
  - Seasonal allergy [Unknown]
  - Depressed mood [Unknown]
  - Sinusitis [Not Recovered/Not Resolved]
  - Visual impairment [Not Recovered/Not Resolved]
  - Dizziness [Unknown]
  - Nausea [Unknown]
  - Migraine [Unknown]

NARRATIVE: CASE EVENT DATE: 20240101
